FAERS Safety Report 10588627 (Version 2)
Quarter: 2014Q4

REPORT INFORMATION
  Report Type: Spontaneous
  Country: US (occurrence: US)
  Receive Date: 20141117
  Receipt Date: 20141215
  Transmission Date: 20150529
  Serious: No
  Sender: FDA-Public Use
  Company Number: US-PFIZER INC-2014314725

PATIENT
  Age: 52 Year
  Sex: Female

DRUGS (2)
  1. CHANTIX [Suspect]
     Active Substance: VARENICLINE TARTRATE
     Indication: SMOKING CESSATION THERAPY
     Dosage: 1.5 DF, 1 PILL IN MORNING AND 1/2 PILL EVENING)
     Dates: start: 201402, end: 2014
  2. CHANTIX [Suspect]
     Active Substance: VARENICLINE TARTRATE
     Dosage: 1/2 DF
     Dates: start: 2014

REACTIONS (3)
  - Abnormal dreams [Recovering/Resolving]
  - Nausea [Recovered/Resolved]
  - Intentional product misuse [Unknown]
